FAERS Safety Report 6095408-5 (Version None)
Quarter: 2009Q1

REPORT INFORMATION
  Report Type: 
  Country: None (occurrence: None)
  Receive Date: 20090227
  Receipt Date: 20080326
  Transmission Date: 20090719
  Serious: Yes (Other)
  Sender: FDA-Public Use
  Company Number: A0717593A

PATIENT
  Age: 60 Year
  Sex: Female

DRUGS (14)
  1. LAMICTAL [Suspect]
     Dosage: 100MG TWICE PER DAY
     Route: 048
  2. FENTANYL [Concomitant]
  3. LOVENOX [Concomitant]
  4. NOVOLOG [Concomitant]
  5. DUONEB [Concomitant]
  6. NEUTRAPHOS [Concomitant]
  7. CLINDAMYCIN HCL [Concomitant]
  8. DECADRON [Concomitant]
  9. LASIX [Concomitant]
  10. MORPHINE [Concomitant]
  11. PROTONIX [Concomitant]
  12. POTASSIUM CHLORIDE [Concomitant]
  13. ATIVAN [Concomitant]
  14. LEVOPHED [Concomitant]

REACTIONS (1)
  - CONVULSION [None]
